FAERS Safety Report 5927115-0 (Version None)
Quarter: 2008Q4

REPORT INFORMATION
  Report Type: 
  Country: None (occurrence: None)
  Receive Date: 20081022
  Receipt Date: 20081017
  Transmission Date: 20090506
  Serious: No
  Sender: FDA-Public Use
  Company Number: US-B.I. PHARMACEUTICALS,INC./RIDGEFIELD-2008-BP-14426BP

PATIENT
  Sex: Female

DRUGS (14)
  1. SPIRIVA [Suspect]
     Indication: CHRONIC OBSTRUCTIVE PULMONARY DISEASE
     Dosage: 18MCG
     Route: 055
     Dates: start: 20080723, end: 20080808
  2. COZAAR [Concomitant]
     Dosage: 100MG
  3. LEVOTHYROXINE SODIUM [Concomitant]
  4. HYDROCHLOROTHIAZIDE [Concomitant]
     Dosage: 25MG
  5. PAXIL [Concomitant]
     Dosage: 10MG
  6. NORVASC [Concomitant]
     Dosage: 5MG
  7. PRILOSEC [Concomitant]
     Dosage: 20MG
  8. ZOCOR [Concomitant]
     Dosage: 80MG
  9. ASPIRIN [Concomitant]
     Dosage: 81MG
  10. THYROID TAB [Concomitant]
     Dosage: .05MG
  11. VIT C [Concomitant]
  12. GLUC/COND [Concomitant]
  13. CALCIUM W/D [Concomitant]
  14. VIT/MINERAL [Concomitant]

REACTIONS (5)
  - BLOOD PRESSURE INCREASED [None]
  - CHEST PAIN [None]
  - COUGH [None]
  - MUSCULOSKELETAL CHEST PAIN [None]
  - PAIN [None]
